FAERS Safety Report 4930209-X (Version None)
Quarter: 2006Q1

REPORT INFORMATION
  Report Type: 
  Country: None (occurrence: None)
  Receive Date: 20060302
  Receipt Date: 20060222
  Transmission Date: 20060701
  Serious: Yes (Other)
  Sender: FDA-Public Use
  Company Number: US-ROCHE-437888

PATIENT
  Sex: Male

DRUGS (2)
  1. PEGASYS [Suspect]
     Route: 065
     Dates: start: 20050415, end: 20050815
  2. COPEGUS [Suspect]
     Route: 065
     Dates: start: 20050415, end: 20050815

REACTIONS (3)
  - CONTUSION [None]
  - CONVULSION [None]
  - DRUG EFFECT DECREASED [None]
